FAERS Safety Report 21032059 (Version 1)
Quarter: 2022Q3

REPORT INFORMATION
  Report Type: Spontaneous
  Country: US (occurrence: US)
  Receive Date: 20220701
  Receipt Date: 20220701
  Transmission Date: 20221026
  Serious: No
  Sender: FDA-Public Use
  Company Number: US-Accord-254964

PATIENT
  Sex: Female

DRUGS (1)
  1. MYCOPHENOLIC ACID [Suspect]
     Active Substance: MYCOPHENOLIC ACID
     Indication: Myasthenia gravis

REACTIONS (1)
  - Off label use [Unknown]
